FAERS Safety Report 8452026-9 (Version None)
Quarter: 2012Q2

REPORT INFORMATION
  Report Type: 
  Country: None (occurrence: None)
  Receive Date: 20120620
  Receipt Date: 20120618
  Transmission Date: 20120825
  Serious: Yes (Death, Life-Threatening, Hospitalization)
  Sender: FDA-Public Use
  Company Number: NL-ROCHE-GNE321214

PATIENT
  Sex: Male
  Weight: 74.079 kg

DRUGS (18)
  1. DICLOFENAC SODIUM [Concomitant]
     Indication: PAIN
  2. MABTHERA [Suspect]
     Indication: B-CELL LYMPHOMA
     Dosage: 710 MG, UNK
     Route: 042
     Dates: start: 20101111
  3. DIFLUCAN [Concomitant]
     Indication: FUNGAL INFECTION
     Route: 048
     Dates: start: 20101111
  4. COTRIM [Concomitant]
     Indication: FUNGAL INFECTION
     Dates: start: 20101111
  5. PIPERACILLIN AND TAZOBACTAM [Concomitant]
  6. CYCLOPHOSPHAMIDE [Suspect]
     Indication: B-CELL LYMPHOMA
     Dosage: 1430 MG, UNK
     Route: 042
     Dates: start: 20101111
  7. NEULASTA [Suspect]
     Indication: B-CELL LYMPHOMA
     Dosage: 6 MG, UNK
  8. VALACYCLOVIR HYDROCHLORIDE [Concomitant]
     Indication: VIRAL INFECTION
  9. FENAZEPAM [Concomitant]
     Indication: INSOMNIA
  10. VALACYCLOVIR HYDROCHLORIDE [Concomitant]
     Indication: HERPES VIRUS INFECTION
     Route: 048
     Dates: start: 20101111
  11. DOXORUBICIN HCL [Suspect]
     Indication: B-CELL LYMPHOMA
     Dosage: UNK
     Route: 042
     Dates: start: 20101111
  12. COTRIM [Concomitant]
     Indication: PROPHYLAXIS
     Route: 048
     Dates: start: 20101111
  13. VINCRISTINE [Suspect]
     Indication: B-CELL LYMPHOMA
     Dosage: 1 MG, UNK
     Dates: start: 20101111
  14. ALLOPURINOL [Concomitant]
     Indication: GOUT
  15. OMEPRAZOLE [Concomitant]
  16. PREDNISONE TAB [Suspect]
     Indication: B-CELL LYMPHOMA
     Dosage: 500 MG, UNK
     Dates: start: 20101111
  17. ONDANSETRON [Concomitant]
     Indication: NAUSEA
     Route: 048
     Dates: start: 20110120, end: 20110122
  18. FLUCONAZOLE [Concomitant]

REACTIONS (16)
  - DECREASED APPETITE [None]
  - CARDIAC FAILURE [None]
  - ACUTE MYOCARDIAL INFARCTION [None]
  - LOSS OF CONSCIOUSNESS [None]
  - GASTROINTESTINAL ULCER HAEMORRHAGE [None]
  - LUNG DISORDER [None]
  - PULMONARY SEPSIS [None]
  - TOXICITY TO VARIOUS AGENTS [None]
  - NEOPLASM PROGRESSION [None]
  - DISEASE PROGRESSION [None]
  - DRUG-INDUCED LIVER INJURY [None]
  - DIFFUSE LARGE B-CELL LYMPHOMA [None]
  - FALL [None]
  - FAECAL INCONTINENCE [None]
  - SENSORY DISTURBANCE [None]
  - MULTI-ORGAN FAILURE [None]
